FAERS Safety Report 15407128 (Version 1)
Quarter: 2018Q3

REPORT INFORMATION
  Report Type: Spontaneous
  Country: US (occurrence: US)
  Receive Date: 20180920
  Receipt Date: 20180920
  Transmission Date: 20181010
  Serious: No
  Sender: FDA-Public Use
  Company Number: US-MYLANLABS-2018M1066692

PATIENT
  Age: 90 Year
  Sex: Female

DRUGS (1)
  1. SPIRONOLACTONE AND HYDROCHLOROTHIAZIDE [Suspect]
     Active Substance: HYDROCHLOROTHIAZIDE\SPIRONOLACTONE
     Indication: HYPERTENSION
     Dosage: UNK

REACTIONS (3)
  - Wrong technique in product usage process [Unknown]
  - Muscle spasms [Unknown]
  - Product availability issue [Unknown]
